FAERS Safety Report 9154638 (Version 5)
Quarter: 2013Q4

REPORT INFORMATION
  Report Type: Spontaneous
  Country: US (occurrence: US)
  Receive Date: 20130311
  Receipt Date: 20131115
  Transmission Date: 20140711
  Serious: Yes (Hospitalization, Other)
  Sender: FDA-Public Use
  Company Number: US-MERCK-1303USA003927

PATIENT
  Sex: Female
  Weight: 54.42 kg

DRUGS (9)
  1. FOSAMAX [Suspect]
     Indication: OSTEOPOROSIS
     Dosage: 70 MG, UNK
     Route: 048
  2. FOSAMAX [Suspect]
     Dosage: 10 MG, UNK
     Route: 048
  3. ALENDRONATE SODIUM [Suspect]
     Indication: OSTEOPOROSIS
     Dosage: 70 MG, UNK
     Route: 048
     Dates: start: 20080501, end: 20081029
  4. CALCIUM (UNSPECIFIED) [Concomitant]
     Dosage: 81 MG, UNK
     Dates: start: 1980
  5. VITAMIN D (UNSPECIFIED) [Concomitant]
     Dosage: 81 MG, UNK
     Dates: start: 1980
  6. VITAMINS (UNSPECIFIED) [Concomitant]
     Dosage: UNK
     Dates: start: 1980
  7. MIACALCIN [Concomitant]
  8. HORMONES (UNSPECIFIED) [Concomitant]
     Dosage: UNK
     Dates: start: 1990, end: 2000
  9. CALCITONIN [Concomitant]
     Indication: OSTEOPOROSIS

REACTIONS (43)
  - Open reduction of fracture [Unknown]
  - Cervix carcinoma [Unknown]
  - Fracture [Unknown]
  - Hernia [Unknown]
  - Spinal fracture [Unknown]
  - Atypical femur fracture [Unknown]
  - Pelvic fracture [Unknown]
  - Low turnover osteopathy [Unknown]
  - Limb asymmetry [Unknown]
  - Anaemia postoperative [Recovering/Resolving]
  - Osteoarthritis [Unknown]
  - Phlebitis superficial [Unknown]
  - Pneumonia [Unknown]
  - Hypercholesterolaemia [Unknown]
  - Diverticulitis [Unknown]
  - Diverticulum [Unknown]
  - Urinary tract infection [Unknown]
  - Anaemia [Unknown]
  - Inguinal hernia repair [Unknown]
  - Tonsillectomy [Unknown]
  - Hysterectomy [Unknown]
  - Somnolence [Unknown]
  - Delirium [Unknown]
  - Osteopenia [Unknown]
  - Flank pain [Unknown]
  - Drug intolerance [Unknown]
  - Varicose vein [Unknown]
  - Local swelling [Unknown]
  - Cataract [Unknown]
  - Cataract operation [Unknown]
  - Intraocular lens implant [Unknown]
  - Mitral valve disease [Unknown]
  - Peripheral vascular disorder [Unknown]
  - Chronic obstructive pulmonary disease [Unknown]
  - Macular degeneration [Unknown]
  - Varicose vein operation [Unknown]
  - Polypectomy [Unknown]
  - Neurectomy [Unknown]
  - Tonsillitis [Unknown]
  - Spondylitis [Unknown]
  - Emphysema [Unknown]
  - Gastrooesophageal reflux disease [Unknown]
  - Abdominal pain lower [Recovered/Resolved]
